FAERS Safety Report 10790637 (Version 1)
Quarter: 2015Q1

REPORT INFORMATION
  Report Type: Spontaneous
  Country: US (occurrence: US)
  Receive Date: 20150212
  Receipt Date: 20150212
  Transmission Date: 20150721
  Serious: No
  Sender: FDA-Public Use
  Company Number: US-GLAXOSMITHKLINE-US2014035444

PATIENT
  Sex: Female

DRUGS (3)
  1. DYAZIDE [Suspect]
     Active Substance: HYDROCHLOROTHIAZIDE\TRIAMTERENE
     Indication: HYPERTENSION
     Dosage: 1 DF, QD
     Dates: start: 2005
  2. VITAMIN C [Concomitant]
     Active Substance: ASCORBIC ACID
  3. DYAZIDE [Suspect]
     Active Substance: HYDROCHLOROTHIAZIDE\TRIAMTERENE
     Dosage: 1 DF, Z

REACTIONS (5)
  - Allergic respiratory symptom [Recovered/Resolved]
  - Chest discomfort [Recovered/Resolved]
  - Drug administration error [Unknown]
  - Dry skin [Recovered/Resolved]
  - Drug hypersensitivity [Recovered/Resolved]
